FAERS Safety Report 8157675-3 (Version None)
Quarter: 2012Q1

REPORT INFORMATION
  Report Type: 
  Country: None (occurrence: None)
  Receive Date: 20120222
  Receipt Date: 20120214
  Transmission Date: 20120608
  Serious: Yes (Other)
  Sender: FDA-Public Use
  Company Number: US-PFIZER INC-2012042216

PATIENT
  Age: 90 Year
  Sex: Male

DRUGS (1)
  1. ATORVASTATIN CALCIUM [Suspect]
     Dosage: 80 MG, UNK

REACTIONS (10)
  - NAUSEA [None]
  - OROPHARYNGEAL PAIN [None]
  - NASAL CONGESTION [None]
  - FATIGUE [None]
  - THROAT TIGHTNESS [None]
  - FLUSHING [None]
  - DYSPHAGIA [None]
  - RASH [None]
  - EYE PRURITUS [None]
  - RHINORRHOEA [None]
